FAERS Safety Report 13569278 (Version 1)
Quarter: 2017Q2

REPORT INFORMATION
  Report Type: Spontaneous
  Country: FR (occurrence: FR)
  Receive Date: 20170522
  Receipt Date: 20170522
  Transmission Date: 20170830
  Serious: Yes (Life-Threatening, Hospitalization)
  Sender: FDA-Public Use
  Company Number: FR-INCYTE CORPORATION-2017IN003817

PATIENT

DRUGS (7)
  1. JAKAVI [Suspect]
     Active Substance: RUXOLITINIB
     Indication: POLYCYTHAEMIA VERA
     Dosage: 20 MG, QD
     Route: 048
  2. ASPIRIN. [Suspect]
     Active Substance: ASPIRIN
     Indication: BRONCHITIS
     Dosage: 3 G, QD
     Route: 048
     Dates: start: 20170420, end: 20170423
  3. PROFENID [Suspect]
     Active Substance: KETOPROFEN
     Indication: ARTHRALGIA
     Dosage: UNK
     Route: 030
     Dates: start: 20170420, end: 20170423
  4. CORTISONE ACETATE. [Suspect]
     Active Substance: CORTISONE ACETATE
     Indication: BRONCHITIS
     Dosage: UNK
     Route: 048
     Dates: start: 20170420, end: 20170423
  5. KARDEGIC [Concomitant]
     Active Substance: ASPIRIN LYSINE
     Indication: ISCHAEMIC STROKE
  6. KARDEGIC [Concomitant]
     Active Substance: ASPIRIN LYSINE
     Indication: BRONCHITIS
     Dosage: 160 OT, UNKNOWN
     Route: 065
     Dates: end: 20170420
  7. KARDEGIC [Concomitant]
     Active Substance: ASPIRIN LYSINE
     Indication: DIABETES MELLITUS INADEQUATE CONTROL

REACTIONS (1)
  - Ischaemic stroke [Recovering/Resolving]

NARRATIVE: CASE EVENT DATE: 20170423
